FAERS Safety Report 7746274-0 (Version None)
Quarter: 2011Q3

REPORT INFORMATION
  Report Type: 
  Country: None (occurrence: None)
  Receive Date: 20110913
  Receipt Date: 20110907
  Transmission Date: 20111222
  Serious: Yes (Hospitalization)
  Sender: FDA-Public Use
  Company Number: AU-BRISTOL-MYERS SQUIBB COMPANY-16039117

PATIENT
  Age: 95 Year
  Sex: Female

DRUGS (1)
  1. AVAPRO [Suspect]

REACTIONS (4)
  - FOOT FRACTURE [None]
  - DRUG INEFFECTIVE [None]
  - BLOOD GLUCOSE DECREASED [None]
  - INSOMNIA [None]
